FAERS Safety Report 8486947-8 (Version None)
Quarter: 2012Q3

REPORT INFORMATION
  Report Type: 
  Country: None (occurrence: None)
  Receive Date: 20120704
  Receipt Date: 20120625
  Transmission Date: 20120928
  Serious: No
  Sender: FDA-Public Use
  Company Number: US-TEVA-345080USA

PATIENT
  Sex: Male

DRUGS (2)
  1. NUVIGIL [Suspect]
     Indication: NARCOLEPSY
     Dosage: QAM
     Dates: start: 20090601
  2. NUVIGIL [Suspect]
     Indication: SLEEP APNOEA SYNDROME

REACTIONS (2)
  - DRUG EFFECT DECREASED [None]
  - HYPERSOMNIA [None]
